FAERS Safety Report 6062461-4 (Version None)
Quarter: 2009Q1

REPORT INFORMATION
  Report Type: 
  Country: None (occurrence: None)
  Receive Date: 20090203
  Receipt Date: 20090125
  Transmission Date: 20090719
  Serious: Yes (Hospitalization)
  Sender: FDA-Public Use
  Company Number: IL-NOVOPROD-283522

PATIENT
  Age: 75 Year
  Sex: Female

DRUGS (2)
  1. INSULATARD [Suspect]
     Indication: DRUG USE FOR UNKNOWN INDICATION
  2. LEVEMIR [Suspect]
     Indication: DRUG USE FOR UNKNOWN INDICATION

REACTIONS (4)
  - CARDIAC ARREST [None]
  - INSOMNIA [None]
  - LOSS OF CONSCIOUSNESS [None]
  - RESTLESSNESS [None]
